FAERS Safety Report 24127072 (Version 3)
Quarter: 2025Q1

REPORT INFORMATION
  Report Type: Report from Study
  Country: US (occurrence: US)
  Receive Date: 20240723
  Receipt Date: 20250305
  Transmission Date: 20250409
  Serious: Yes (Death, Hospitalization)
  Sender: TEVA
  Company Number: US-TEVA-VS-3212446

PATIENT
  Age: 81 Year
  Sex: Female

DRUGS (4)
  1. AUSTEDO [Suspect]
     Active Substance: DEUTETRABENAZINE
     Indication: Tardive dyskinesia
     Dosage: 6MG AM AND 12MG PM
     Route: 048
     Dates: start: 20231128, end: 20240623
  2. OXCARBAZEPINE [Concomitant]
     Active Substance: OXCARBAZEPINE
     Indication: Bipolar disorder
     Dosage: AT BEDTIME
     Route: 048
  3. LAMOTRIGINE [Concomitant]
     Active Substance: LAMOTRIGINE
     Indication: Bipolar disorder
     Route: 048
  4. FAMOTIDINE [Concomitant]
     Active Substance: FAMOTIDINE
     Indication: Bipolar disorder
     Dosage: AT BEDTIME
     Route: 048

REACTIONS (6)
  - Pneumonia [Fatal]
  - Chest pain [Recovered/Resolved with Sequelae]
  - Cardiac arrest [Fatal]
  - Asthenia [Recovered/Resolved]
  - Dehydration [Recovered/Resolved]
  - Fall [Unknown]

NARRATIVE: CASE EVENT DATE: 20240101
